FAERS Safety Report 9147307 (Version 1)
Quarter: 2013Q1

REPORT INFORMATION
  Report Type: Spontaneous
  Country: DE (occurrence: DE)
  Receive Date: 20130307
  Receipt Date: 20130307
  Transmission Date: 20140127
  Serious: Yes (Other)
  Sender: FDA-Public Use
  Company Number: DE-BAYER-2013-029212

PATIENT
  Age: 45 Year
  Sex: Female

DRUGS (1)
  1. GADOVIST [Suspect]
     Dosage: 6 ML, UNK

REACTIONS (2)
  - Nausea [None]
  - Bradycardia [None]
